FAERS Safety Report 5616151-X (Version None)
Quarter: 2008Q1

REPORT INFORMATION
  Report Type: 
  Country: None (occurrence: None)
  Receive Date: 20080206
  Receipt Date: 20080129
  Transmission Date: 20080703
  Serious: Yes (Other)
  Sender: FDA-Public Use
  Company Number: JP-PFIZER INC-2008009754

PATIENT
  Age: 82 Year
  Sex: Female

DRUGS (5)
  1. AROMASIN [Suspect]
     Route: 048
  2. NORVASC [Concomitant]
     Route: 048
  3. ASPIRIN [Concomitant]
     Route: 048
  4. ALOSENN [Concomitant]
     Route: 048
  5. GANATON [Concomitant]
     Route: 048

REACTIONS (1)
  - METRORRHAGIA [None]
